FAERS Safety Report 7759111-5 (Version None)
Quarter: 2011Q3

REPORT INFORMATION
  Report Type: 
  Country: None (occurrence: None)
  Receive Date: 20110915
  Receipt Date: 20110909
  Transmission Date: 20111222
  Serious: Yes (Hospitalization)
  Sender: FDA-Public Use
  Company Number: 122481

PATIENT
  Age: 48 Year
  Sex: Male

DRUGS (1)
  1. DAUNORUBICIN HCL [Suspect]
     Indication: ACUTE MYELOID LEUKAEMIA
     Dosage: 50MG/M2, IV
     Route: 042
     Dates: start: 20110715, end: 20110725

REACTIONS (3)
  - HAEMORRHAGE [None]
  - LEUKAEMIC INFILTRATION BRAIN [None]
  - CONVULSION [None]
